FAERS Safety Report 4970067-0 (Version None)
Quarter: 2006Q2

REPORT INFORMATION
  Report Type: 
  Country: None (occurrence: None)
  Receive Date: 20060406
  Receipt Date: 20060324
  Transmission Date: 20061013
  Serious: Yes (Hospitalization)
  Sender: FDA-Public Use
  Company Number: US-2006-003953

PATIENT
  Age: 28 Year
  Sex: Female

DRUGS (22)
  1. BETASERON [Suspect]
     Indication: RELAPSING-REMITTING MULTIPLE SCLEROSIS
     Dosage: SEE IMAGE
     Route: 058
     Dates: start: 20050513, end: 20050525
  2. BETASERON [Suspect]
     Indication: RELAPSING-REMITTING MULTIPLE SCLEROSIS
     Dosage: SEE IMAGE
     Route: 058
     Dates: start: 20050527, end: 20050608
  3. BETASERON [Suspect]
     Indication: RELAPSING-REMITTING MULTIPLE SCLEROSIS
     Dosage: SEE IMAGE
     Route: 058
     Dates: start: 20050610, end: 20050701
  4. BETASERON [Suspect]
     Indication: RELAPSING-REMITTING MULTIPLE SCLEROSIS
     Dosage: SEE IMAGE
     Route: 058
     Dates: start: 20050701, end: 20060201
  5. BETASERON [Suspect]
     Indication: RELAPSING-REMITTING MULTIPLE SCLEROSIS
     Dosage: SEE IMAGE
     Route: 058
     Dates: start: 20060323
  6. BETASERON [Suspect]
     Indication: RELAPSING-REMITTING MULTIPLE SCLEROSIS
     Dosage: 20 MG, 1X/DAY, SUBCUTANEOUS
     Route: 058
     Dates: start: 20040923, end: 20050414
  7. EFFEXOR XR [Concomitant]
  8. IBUPROFEN [Concomitant]
  9. NORTRIPTYLINE HCL [Concomitant]
  10. TRAZODONE HCL [Concomitant]
  11. MIRTAZAPINE [Concomitant]
  12. HYDROCORTISONE CREAM [Concomitant]
  13. LORAZEPAM [Concomitant]
  14. AMBIEN [Concomitant]
  15. ACETAMINOPHEN [Concomitant]
  16. ORTHO TRI-CYCLEN LO (NORGESTIMATE) [Concomitant]
  17. AMITRIPTYLINE HCL [Concomitant]
  18. VICODIN [Concomitant]
  19. AMOXICILLIN [Concomitant]
  20. MEDROL [Concomitant]
  21. CEPHALEXIN [Concomitant]
  22. EFEXOR XR (VENLAFAXINE) [Concomitant]

REACTIONS (1)
  - AFFECTIVE DISORDER [None]
